FAERS Safety Report 5441180-9 (Version None)
Quarter: 2007Q3

REPORT INFORMATION
  Report Type: 
  Country: None (occurrence: None)
  Receive Date: 20070901
  Receipt Date: 20070820
  Transmission Date: 20080115
  Serious: Yes (Other)
  Sender: FDA-Public Use
  Company Number: IE-PFIZER INC-2007070131

PATIENT
  Sex: Female

DRUGS (2)
  1. EXUBERA [Suspect]
     Indication: TYPE 1 DIABETES MELLITUS
     Route: 055
  2. LANTUS [Concomitant]

REACTIONS (1)
  - VISUAL ACUITY REDUCED [None]
